FAERS Safety Report 8667722 (Version 2)
Quarter: 2012Q4

REPORT INFORMATION
  Report Type: 
  Country: US (occurrence: US)
  Receive Date: 20120717
  Receipt Date: 20120917
  Transmission Date: 20130627
  Serious: Yes (Other)
  Sender: FDA-Public Use
  Company Number: US-PFIZER INC-2012168221

PATIENT
  Age: 42 Year
  Sex: Female

DRUGS (1)
  1. DILANTIN [Suspect]
     Indication: CONVULSION
     Dosage: 200 mg, 2x/day (100 mg, 2 capsules twice a day)
     Route: 048

REACTIONS (4)
  - Anticonvulsant drug level decreased [Recovered/Resolved]
  - Convulsion [Unknown]
  - Road traffic accident [Recovered/Resolved]
  - Impaired work ability [Unknown]
